FAERS Safety Report 8199742-4 (Version None)
Quarter: 2012Q1

REPORT INFORMATION
  Report Type: 
  Country: None (occurrence: None)
  Receive Date: 20120311
  Receipt Date: 20120228
  Transmission Date: 20120608
  Serious: Yes (Hospitalization, Other)
  Sender: FDA-Public Use
  Company Number: PHEH2012US004815

PATIENT
  Sex: Female

DRUGS (21)
  1. PRILOSEC [Concomitant]
  2. COUMADIN [Concomitant]
     Dosage: 5 MG, QD
  3. FLUOCINONIDE [Concomitant]
     Route: 061
  4. BENADRYL [Concomitant]
  5. CALTRATE +D [Concomitant]
  6. DIPHENHYDRAMINE HCL [Concomitant]
  7. VANCOMYCIN [Concomitant]
     Dosage: 1 G, EVERY 12 HOURS
     Route: 042
  8. IPRATROPIUM BROMIDE [Concomitant]
  9. ZANTAC [Concomitant]
  10. EXJADE [Suspect]
     Dosage: 500 MG, UNK
  11. TRIAMCINOLONE [Concomitant]
     Dosage: 0.1 %, UNK
  12. HYDROXYZINE [Concomitant]
  13. ALBUTEROL [Concomitant]
  14. INSULIN [Concomitant]
  15. CAMPATH [Concomitant]
  16. ACYCLOVIR [Concomitant]
     Dosage: 400 MG, TID
  17. AXID [Concomitant]
  18. CIPROFLOXACIN [Concomitant]
  19. OMEPRAZOLE [Concomitant]
     Dosage: 20 MG, DAILY
  20. VANCOMYCIN [Concomitant]
     Dosage: 750 MG,EVER 12 HOURS
  21. CITRUCEL [Concomitant]

REACTIONS (35)
  - TENDERNESS [None]
  - MUSCULOSKELETAL PAIN [None]
  - PYREXIA [None]
  - VULVOVAGINAL PAIN [None]
  - THROAT TIGHTNESS [None]
  - PERINEAL ULCERATION [None]
  - RASH PUSTULAR [None]
  - DIZZINESS [None]
  - BLOODY DISCHARGE [None]
  - HEADACHE [None]
  - INFECTION [None]
  - VULVOVAGINAL ULCERATION [None]
  - PURULENT DISCHARGE [None]
  - TACHYPNOEA [None]
  - VULVOVAGINAL BURNING SENSATION [None]
  - VAGINAL DISCHARGE [None]
  - ABSCESS [None]
  - WOUND [None]
  - RASH PRURITIC [None]
  - NODULE [None]
  - LUNG INFILTRATION [None]
  - PLEURAL EFFUSION [None]
  - SKIN HYPERPIGMENTATION [None]
  - SWELLING [None]
  - SKIN EXFOLIATION [None]
  - NECK PAIN [None]
  - ANTIBIOTIC RESISTANT STAPHYLOCOCCUS TEST POSITIVE [None]
  - STEVENS-JOHNSON SYNDROME [None]
  - CHILLS [None]
  - INTERTRIGO [None]
  - VULVAL DISORDER [None]
  - DYSPHAGIA [None]
  - DERMATITIS [None]
  - ERYTHEMA MULTIFORME [None]
  - DYSPNOEA [None]
